FAERS Safety Report 4886925-1 (Version None)
Quarter: 2006Q1

REPORT INFORMATION
  Report Type: 
  Country: None (occurrence: None)
  Receive Date: 20060118
  Receipt Date: 20060106
  Transmission Date: 20060701
  Serious: Yes (Hospitalization)
  Sender: FDA-Public Use
  Company Number: USA0508104471

PATIENT
  Age: 76 Year
  Sex: Male

DRUGS (8)
  1. FORTEO [Suspect]
     Dosage: SEE IMAGE
     Dates: start: 20050615, end: 20050724
  2. FORTEO [Suspect]
     Dosage: SEE IMAGE
     Dates: start: 20050801
  3. FORTEO PEN (FORTEO PEN) PEN DISPOSABLE [Concomitant]
  4. NEXIUM [Concomitant]
  5. ENALAPRIL MALEATE [Concomitant]
  6. AMBIEN [Concomitant]
  7. CALTRATE (CALCIUM CARBONATE) [Concomitant]
  8. OCUVITE (ASCORBIC ACID, RETINOL, TOCOPHEROL) [Concomitant]

REACTIONS (2)
  - BILIARY COLIC [None]
  - CHOLELITHIASIS [None]
